FAERS Safety Report 10012241 (Version 1)
Quarter: 2014Q1

REPORT INFORMATION
  Report Type: Spontaneous
  Country: ES (occurrence: ES)
  Receive Date: 20140314
  Receipt Date: 20140314
  Transmission Date: 20141002
  Serious: Yes (Hospitalization)
  Sender: FDA-Public Use
  Company Number: PHHY2014ES030320

PATIENT
  Age: 64 Year
  Sex: Female

DRUGS (8)
  1. ETUMINA [Suspect]
     Indication: BIPOLAR DISORDER
     Dosage: 30 DF
     Route: 048
     Dates: start: 20110513, end: 20110515
  2. ETUMINA [Suspect]
     Dosage: DOSE LOWERED
     Route: 048
  3. LAMOTRIGINE [Suspect]
     Indication: BIPOLAR DISORDER
     Dosage: UNK
     Route: 048
     Dates: start: 20110513, end: 20110515
  4. LAMOTRIGINE [Suspect]
     Dosage: DOSE REDUCED
     Route: 048
  5. RISPERDAL [Suspect]
     Indication: BIPOLAR DISORDER
     Dosage: 20 DF
     Route: 048
     Dates: start: 20110513, end: 20110515
  6. RISPERDAL [Suspect]
     Dosage: DOSE REDUCED
     Route: 048
  7. HALOPERIDOL [Suspect]
     Indication: BIPOLAR DISORDER
     Dosage: UNK
     Route: 048
     Dates: start: 20110513, end: 20110515
  8. HALOPERIDOL [Suspect]
     Dosage: DOSE REDUCED
     Route: 048

REACTIONS (1)
  - Neuroleptic malignant syndrome [Recovered/Resolved]
